FAERS Safety Report 15074978 (Version 1)
Quarter: 2018Q2

REPORT INFORMATION
  Report Type: Spontaneous
  Country: US (occurrence: US)
  Receive Date: 20180627
  Receipt Date: 20180627
  Transmission Date: 20180711
  Serious: No
  Sender: FDA-Public Use
  Company Number: US-SAOL THERAPEUTICS-2017SAO03387

PATIENT
  Sex: Female

DRUGS (9)
  1. CLONIDINE. [Suspect]
     Active Substance: CLONIDINE
     Dosage: UNK
     Route: 037
     Dates: end: 20170810
  2. CLONIDINE. [Suspect]
     Active Substance: CLONIDINE
     Dosage: 333.2 ?G, \DAY
     Route: 037
     Dates: start: 20171120
  3. BACLOFEN. [Suspect]
     Active Substance: BACLOFEN
     Indication: PAIN
     Dosage: UNK
     Route: 037
     Dates: end: 20170810
  4. CLONIDINE. [Suspect]
     Active Substance: CLONIDINE
     Dosage: UNK
     Route: 037
     Dates: start: 20170810, end: 20171120
  5. BACLOFEN. [Suspect]
     Active Substance: BACLOFEN
     Dosage: UNK
     Route: 037
     Dates: start: 20170810, end: 20171120
  6. DILAUDID [Suspect]
     Active Substance: HYDROMORPHONE HYDROCHLORIDE
     Dosage: UNK
     Route: 037
     Dates: end: 20170810
  7. DILAUDID [Suspect]
     Active Substance: HYDROMORPHONE HYDROCHLORIDE
     Dosage: 24.991 MG, \DAY
     Route: 037
     Dates: start: 20171120
  8. BACLOFEN. [Suspect]
     Active Substance: BACLOFEN
     Dosage: 66.64 ?G, UNK
     Route: 037
     Dates: start: 20171120
  9. DILAUDID [Suspect]
     Active Substance: HYDROMORPHONE HYDROCHLORIDE
     Dosage: UNK
     Route: 037
     Dates: start: 20170810, end: 20171120

REACTIONS (5)
  - Throat tightness [Recovered/Resolved]
  - Syncope [Recovered/Resolved]
  - Choking [Recovered/Resolved]
  - Abdominal discomfort [Recovered/Resolved]
  - Off label use [Unknown]

NARRATIVE: CASE EVENT DATE: 20170810
